FAERS Safety Report 5907683-5 (Version None)
Quarter: 2008Q4

REPORT INFORMATION
  Report Type: 
  Country: None (occurrence: None)
  Receive Date: 20081003
  Receipt Date: 19980803
  Transmission Date: 20090506
  Serious: Yes (Death, Other)
  Sender: FDA-Public Use
  Company Number: ES-ROCHE-103863

PATIENT
  Weight: 60 kg

DRUGS (5)
  1. SAQUINAVIR [Suspect]
     Indication: HIV INFECTION
     Route: 048
     Dates: start: 19980403, end: 19980630
  2. COTRIMOXAZOLE [Concomitant]
     Route: 048
     Dates: start: 19920202, end: 19980630
  3. LEUCOVORIN CALCIUM [Concomitant]
     Route: 048
     Dates: start: 19920202, end: 19980630
  4. DDI [Concomitant]
     Indication: HIV INFECTION
     Route: 048
     Dates: start: 19980601, end: 19980630
  5. STAVUDINE [Concomitant]
     Indication: HIV INFECTION
     Dosage: REPORTED AS ESTAVUDINE
     Route: 048
     Dates: start: 19961010, end: 19980630

REACTIONS (3)
  - CARDIOVASCULAR INSUFFICIENCY [None]
  - DEATH [None]
  - PANCREATITIS [None]
